FAERS Safety Report 18387511 (Version 1)
Quarter: 2020Q4

REPORT INFORMATION
  Report Type: Spontaneous
  Country: US (occurrence: US)
  Receive Date: 20201015
  Receipt Date: 20201015
  Transmission Date: 20210114
  Serious: No
  Sender: FDA-Public Use
  Company Number: NVSC2020US269798

PATIENT
  Sex: Female

DRUGS (1)
  1. TACROLIMUS. [Suspect]
     Active Substance: TACROLIMUS
     Indication: PRODUCT USED FOR UNKNOWN INDICATION
     Dosage: 1.5 MG, QD (1 MG IN MORNING, 0.5 MG IN EVENING)
     Route: 065

REACTIONS (3)
  - Weight decreased [Unknown]
  - Glomerular filtration rate increased [Unknown]
  - Nephropathy toxic [Unknown]
